FAERS Safety Report 24296798 (Version 1)
Quarter: 2024Q3

REPORT INFORMATION
  Report Type: Spontaneous
  Country: US (occurrence: US)
  Receive Date: 20240909
  Receipt Date: 20240909
  Transmission Date: 20241017
  Serious: No
  Sender: ITALFARMACO
  Company Number: US-ITALFARMACO SPA-2161374

PATIENT
  Age: 67 Year
  Sex: Male

DRUGS (19)
  1. TIGLUTIK [Suspect]
     Active Substance: RILUZOLE
     Indication: Amyotrophic lateral sclerosis
     Route: 048
     Dates: start: 20240410
  2. ASPIRIN [Concomitant]
     Active Substance: ASPIRIN
  3. FOLIC ACID [Concomitant]
     Active Substance: FOLIC ACID
  4. VITAMIN D3 [Concomitant]
     Active Substance: CHOLECALCIFEROL
  5. TROSPIUM [Concomitant]
     Active Substance: TROSPIUM
  6. TORSEMIDE [Concomitant]
     Active Substance: TORSEMIDE
  7. TADALAFIL [Concomitant]
     Active Substance: TADALAFIL
  8. RADICAVA [Concomitant]
     Active Substance: EDARAVONE
  9. OMEPRAZOLE [Concomitant]
     Active Substance: OMEPRAZOLE
  10. MAGNESIUM [Concomitant]
     Active Substance: MAGNESIUM
  11. LISINOPRIL [Concomitant]
     Active Substance: LISINOPRIL
  12. GLYCOPYRROLATE [Concomitant]
     Active Substance: GLYCOPYRROLATE
  13. FISH OIL [Concomitant]
     Active Substance: FISH OIL
  14. LEXAPRO [Concomitant]
     Active Substance: ESCITALOPRAM OXALATE
  15. ALDACTONE [Concomitant]
     Active Substance: SPIRONOLACTONE
  16. ATROPINE [Concomitant]
     Active Substance: ATROPINE
  17. ATORVASTATIN [Concomitant]
     Active Substance: ATORVASTATIN
  18. ALLOPURINOL [Concomitant]
     Active Substance: ALLOPURINOL
  19. AMLODIPINE [Concomitant]
     Active Substance: AMLODIPINE BESYLATE

REACTIONS (1)
  - Rash [Recovering/Resolving]

NARRATIVE: CASE EVENT DATE: 20240410
